FAERS Safety Report 11238746 (Version 4)
Quarter: 2018Q1

REPORT INFORMATION
  Report Type: Report from Study
  Country: US (occurrence: US)
  Receive Date: 20150706
  Receipt Date: 20180305
  Transmission Date: 20180508
  Serious: Yes (Hospitalization, Other)
  Sender: FDA-Public Use
  Company Number: US-AMGEN-USASP2015065247

PATIENT
  Age: 48 Year
  Sex: Female

DRUGS (4)
  1. ENBREL [Suspect]
     Active Substance: ETANERCEPT
     Indication: PSORIASIS
  2. SIMPONI [Suspect]
     Active Substance: GOLIMUMAB
     Indication: PRODUCT USED FOR UNKNOWN INDICATION
     Dosage: UNK
     Route: 065
  3. ENBREL [Suspect]
     Active Substance: ETANERCEPT
     Indication: RHEUMATOID ARTHRITIS
  4. ENBREL [Suspect]
     Active Substance: ETANERCEPT
     Indication: PSORIATIC ARTHROPATHY
     Dosage: 25 MG, TWICE WEEKLY
     Route: 065

REACTIONS (10)
  - Psoriasis [Recovered/Resolved]
  - Drug ineffective [Unknown]
  - Dyspnoea [Not Recovered/Not Resolved]
  - Fatigue [Not Recovered/Not Resolved]
  - Device issue [Unknown]
  - Pyrexia [Unknown]
  - Cardiac murmur [Not Recovered/Not Resolved]
  - Rheumatoid arthritis [Not Recovered/Not Resolved]
  - Patient-device incompatibility [Unknown]
  - Condition aggravated [Not Recovered/Not Resolved]

NARRATIVE: CASE EVENT DATE: 2014
